FAERS Safety Report 22026054 (Version 1)
Quarter: 2023Q1

REPORT INFORMATION
  Report Type: Spontaneous
  Country: US (occurrence: None)
  Receive Date: 20230223
  Receipt Date: 20230223
  Transmission Date: 20230418
  Serious: No
  Sender: FDA-Public Use
  Company Number: US-ROCHE-3147470

PATIENT
  Age: 23 Year
  Sex: Female
  Weight: 79.450 kg

DRUGS (12)
  1. XOLAIR [Suspect]
     Active Substance: OMALIZUMAB
     Indication: Chronic spontaneous urticaria
     Dosage: STRENGTH: 150 MG/ML
     Route: 058
     Dates: start: 201608
  2. XOLAIR [Suspect]
     Active Substance: OMALIZUMAB
  3. XOLAIR [Suspect]
     Active Substance: OMALIZUMAB
     Route: 058
     Dates: start: 201609
  4. XOLAIR [Suspect]
     Active Substance: OMALIZUMAB
  5. PHENTERMINE [Concomitant]
     Active Substance: PHENTERMINE
     Indication: Polycystic ovaries
     Route: 048
  6. VITAMIN D3 [Concomitant]
     Active Substance: CHOLECALCIFEROL
     Indication: Vitamin D decreased
     Route: 048
  7. VITAMIN D3 [Concomitant]
     Active Substance: CHOLECALCIFEROL
     Dosage: MAY TAKE TWICE DAILY AT TIMES ;ONGOING: UNKNOWN
     Route: 048
  8. JARRO DOPHILUS [Concomitant]
     Indication: Constipation
     Dosage: 1 TABLET A DAY ;ONGOING: YES
     Route: 048
  9. ALLERTEC [CETIRIZINE] [Concomitant]
     Indication: Seasonal allergy
     Route: 048
  10. ALLERTEC [CETIRIZINE] [Concomitant]
     Indication: Dust allergy
     Dosage: 2 TIMES DAILY IF POLLEN COUNTS HIGH ;ONGOING: UNKNOWN
     Route: 048
  11. SPIRONOLACTONE [Concomitant]
     Active Substance: SPIRONOLACTONE
     Indication: Acne
     Route: 048
     Dates: start: 202205
  12. PARAGARD T 380A [Concomitant]
     Active Substance: COPPER
     Indication: Contraception
     Dosage: COPPER ;ONGOING: YES
     Route: 015
     Dates: start: 2019

REACTIONS (8)
  - Underdose [Unknown]
  - Staphylococcal infection [Recovered/Resolved]
  - Acne [Recovering/Resolving]
  - Product complaint [Unknown]
  - Urticaria [Recovered/Resolved]
  - Contusion [Unknown]
  - Product complaint [Unknown]
  - Wrong technique in device usage process [Unknown]

NARRATIVE: CASE EVENT DATE: 20201101
